FAERS Safety Report 7531417-4 (Version None)
Quarter: 2011Q2

REPORT INFORMATION
  Report Type: 
  Country: None (occurrence: None)
  Receive Date: 20110608
  Receipt Date: 20110603
  Transmission Date: 20111010
  Serious: Yes (Death, Hospitalization, Other)
  Sender: FDA-Public Use
  Company Number: US-AMGEN-USASP2011024578

PATIENT
  Sex: Male
  Weight: 87.528 kg

DRUGS (9)
  1. TRUVADA [Concomitant]
  2. ANTIVIRALS FOR TREATMENT OF HIV INFECTIONS, C [Concomitant]
  3. METHADONE HCL [Concomitant]
  4. NPLATE [Suspect]
     Indication: IDIOPATHIC THROMBOCYTOPENIC PURPURA
     Dosage: 500 A?G, QWK
     Route: 058
     Dates: start: 20100603, end: 20110303
  5. ISENTRESS [Concomitant]
  6. NADOLOL [Concomitant]
  7. NORVASC [Concomitant]
  8. REMERON [Concomitant]
  9. PROTONIX [Concomitant]

REACTIONS (15)
  - ASTHENIA [None]
  - ABDOMINAL DISTENSION [None]
  - HEPATIC ENCEPHALOPATHY [None]
  - PYREXIA [None]
  - MULTI-ORGAN FAILURE [None]
  - OESOPHAGEAL VARICES HAEMORRHAGE [None]
  - ISCHAEMIC HEPATITIS [None]
  - ABDOMINAL PAIN [None]
  - PSEUDOMONAL SEPSIS [None]
  - PERITONITIS BACTERIAL [None]
  - HYPOTENSION [None]
  - HEPATORENAL SYNDROME [None]
  - URINARY TRACT INFECTION PSEUDOMONAL [None]
  - ASCITES [None]
  - LETHARGY [None]
